FAERS Safety Report 17365852 (Version 1)
Quarter: 2020Q1

REPORT INFORMATION
  Report Type: Spontaneous
  Country: IT (occurrence: IT)
  Receive Date: 20200204
  Receipt Date: 20200204
  Transmission Date: 20200409
  Serious: Yes (Disabling)
  Sender: FDA-Public Use
  Company Number: IT-MYLANLABS-2020M1011707

PATIENT
  Age: 25 Year
  Sex: Male
  Weight: 62 kg

DRUGS (2)
  1. UNIDROX [Suspect]
     Active Substance: PRULIFLOXACIN
     Indication: CYSTITIS
     Dosage: 600 MILLIGRAM, NOON
     Route: 048
     Dates: start: 20170920, end: 20170925
  2. LEVOFLOXACIN. [Suspect]
     Active Substance: LEVOFLOXACIN
     Indication: CYSTITIS
     Dosage: 500 MILLIGRAM, QD
     Route: 048
     Dates: start: 20171120, end: 20171125

REACTIONS (7)
  - Inflammation [Not Recovered/Not Resolved]
  - Myalgia [Not Recovered/Not Resolved]
  - Chondropathy [Not Recovered/Not Resolved]
  - Osteoarthritis [Not Recovered/Not Resolved]
  - Dysbiosis [Not Recovered/Not Resolved]
  - Bone pain [Not Recovered/Not Resolved]
  - Tendonitis [Not Recovered/Not Resolved]

NARRATIVE: CASE EVENT DATE: 20171120
